FAERS Safety Report 10332543 (Version 1)
Quarter: 2014Q3

REPORT INFORMATION
  Report Type: Spontaneous
  Country: CN (occurrence: CN)
  Receive Date: 20140722
  Receipt Date: 20140722
  Transmission Date: 20150326
  Serious: Yes (Other)
  Sender: FDA-Public Use
  Company Number: CN-BAYER-2014-104506

PATIENT

DRUGS (6)
  1. GLUCOBAY [Suspect]
     Active Substance: ACARBOSE
     Dosage: UNK
  2. GLUCOBAY [Suspect]
     Active Substance: ACARBOSE
     Dosage: UNK
  3. GLUCOBAY [Suspect]
     Active Substance: ACARBOSE
     Dosage: UNK
  4. GLUCOBAY [Suspect]
     Active Substance: ACARBOSE
     Dosage: UNK
  5. GLUCOBAY [Suspect]
     Active Substance: ACARBOSE
     Dosage: UNK
  6. GLUCOBAY [Suspect]
     Active Substance: ACARBOSE
     Dosage: UNK

REACTIONS (1)
  - Diabetes mellitus inadequate control [None]
